FAERS Safety Report 18699069 (Version 2)
Quarter: 2021Q1

REPORT INFORMATION
  Report Type: Report from Study
  Country: JP (occurrence: JP)
  Receive Date: 20210105
  Receipt Date: 20210112
  Transmission Date: 20210419
  Serious: Yes (Death, Life-Threatening, Other)
  Sender: FDA-Public Use
  Company Number: JP-AMGEN-JPNCT2020213023

PATIENT
  Age: 63 Year
  Sex: Male

DRUGS (7)
  1. DARBEPOETIN ALFA [Suspect]
     Active Substance: DARBEPOETIN ALFA
     Indication: MYELODYSPLASTIC SYNDROME
     Dosage: 240 MICROGRAM, QWK
     Route: 058
     Dates: start: 20150402, end: 20150528
  2. FEBURIC [Concomitant]
     Active Substance: FEBUXOSTAT
     Indication: HYPERURICAEMIA
     Dosage: 20 MG
     Route: 048
  3. VIDAZA [Concomitant]
     Active Substance: AZACITIDINE
     Indication: MYELODYSPLASTIC SYNDROME
     Dosage: 20 MG
     Route: 065
     Dates: start: 20150304
  4. ROCEPHIN [Concomitant]
     Active Substance: CEFTRIAXONE SODIUM
     Dosage: 2 GRAM
     Route: 065
     Dates: start: 20150417
  5. DARBEPOETIN ALFA [Suspect]
     Active Substance: DARBEPOETIN ALFA
     Dosage: 240 MICROGRAM, QWK
     Route: 058
     Dates: start: 20150608, end: 20150629
  6. MAINTATE [Concomitant]
     Active Substance: BISOPROLOL FUMARATE
     Indication: ATRIAL FIBRILLATION
     Dosage: 2.5 MG
     Route: 048
  7. SENNOSIDE A+B CALCIUM [Concomitant]
     Active Substance: SENNOSIDES A AND B
     Indication: CONSTIPATION
     Dosage: 12 MG
     Route: 048

REACTIONS (2)
  - Transformation to acute myeloid leukaemia [Not Recovered/Not Resolved]
  - Cerebral haemorrhage [Fatal]

NARRATIVE: CASE EVENT DATE: 20150629
